FAERS Safety Report 25796567 (Version 2)
Quarter: 2025Q4

REPORT INFORMATION
  Report Type: Spontaneous
  Country: EU (occurrence: EU)
  Receive Date: 20250912
  Receipt Date: 20251022
  Transmission Date: 20260117
  Serious: Yes (Hospitalization)
  Sender: AMGEN
  Company Number: EU-AMGEN-BELSP2025180384

PATIENT
  Age: 35 Year
  Sex: Female

DRUGS (1)
  1. OTEZLA [Suspect]
     Active Substance: APREMILAST
     Indication: Psoriasis
     Dosage: 30 MILLIGRAM, BID
     Route: 048
     Dates: start: 202212

REACTIONS (4)
  - Pneumonia viral [Unknown]
  - Respiratory tract infection [Recovering/Resolving]
  - Sleep disorder due to general medical condition, insomnia type [Unknown]
  - White blood cell disorder [Recovered/Resolved]

NARRATIVE: CASE EVENT DATE: 20250202
